FAERS Safety Report 13191806 (Version 2)
Quarter: 2017Q1

REPORT INFORMATION
  Report Type: Other
  Country: US (occurrence: US)
  Receive Date: 20170207
  Receipt Date: 20170207
  Transmission Date: 20170428
  Serious: Yes (Other)
  Sender: FDA-Public Use
  Company Number: US-DEXPHARM-20170079

PATIENT
  Age: 49 Year
  Sex: Female

DRUGS (12)
  1. LEVETIRACETAM. [Suspect]
     Active Substance: LEVETIRACETAM
     Indication: MELAS SYNDROME
  2. LEVOTHYROXINE. [Concomitant]
     Active Substance: LEVOTHYROXINE
  3. VITAMIN E [Concomitant]
     Active Substance: .ALPHA.-TOCOPHEROL
  4. COENZYME Q10 [Concomitant]
     Active Substance: UBIDECARENONE
  5. CALCIUM [Concomitant]
     Active Substance: CALCIUM
  6. PHENYTOIN. [Interacting]
     Active Substance: PHENYTOIN
     Indication: MELAS SYNDROME
  7. L-ARGININE [Concomitant]
     Active Substance: ARGININE
  8. VITAMIN B12 [Concomitant]
     Active Substance: CYANOCOBALAMIN
  9. VITAMIN C [Concomitant]
     Active Substance: ASCORBIC ACID
  10. LAMOTRIGINE. [Interacting]
     Active Substance: LAMOTRIGINE
     Indication: MELAS SYNDROME
  11. VITAMIN D [Concomitant]
     Active Substance: CHOLECALCIFEROL
  12. CLONAZEPAM. [Concomitant]
     Active Substance: CLONAZEPAM

REACTIONS (1)
  - Drug interaction [Recovered/Resolved]
